FAERS Safety Report 5043415-3 (Version None)
Quarter: 2006Q2

REPORT INFORMATION
  Report Type: 
  Country: None (occurrence: None)
  Receive Date: 20060629
  Receipt Date: 20060620
  Transmission Date: 20061013
  Serious: Yes (Other)
  Sender: FDA-Public Use
  Company Number: 2006-06-1537

PATIENT
  Age: 12 Year
  Sex: Female
  Weight: 44 kg

DRUGS (4)
  1. PEG-INTRON [Suspect]
     Indication: BONE SARCOMA
     Dosage: QWK SUBCUTANEOUS
     Route: 058
     Dates: start: 20060526, end: 20060616
  2. METHOTREXATE [Concomitant]
  3. DOXORUBICIN HCL [Concomitant]
  4. CISPLATIN [Concomitant]

REACTIONS (4)
  - IMPLANT SITE EFFUSION [None]
  - JOINT INSTABILITY [None]
  - JOINT SWELLING [None]
  - MEDICAL DEVICE COMPLICATION [None]
